FAERS Safety Report 12823787 (Version 1)
Quarter: 2016Q4

REPORT INFORMATION
  Report Type: Report from Study
  Country: DE (occurrence: DE)
  Receive Date: 20161006
  Receipt Date: 20161006
  Transmission Date: 20170207
  Serious: Yes (Other)
  Sender: FDA-Public Use
  Company Number: DE-JNJFOC-20160922260

PATIENT
  Age: 34 Year
  Sex: Female
  Weight: 74 kg

DRUGS (4)
  1. RILPIVIRINE HYDROCHLORIDE [Suspect]
     Active Substance: RILPIVIRINE HYDROCHLORIDE
     Indication: HIV INFECTION
     Route: 048
     Dates: start: 20160802, end: 20160831
  2. TRUVADA [Concomitant]
     Active Substance: EMTRICITABINE\TENOFOVIR DISOPROXIL FUMARATE
     Route: 065
     Dates: start: 20110412, end: 20160801
  3. VIRAMUNE [Concomitant]
     Active Substance: NEVIRAPINE
     Route: 065
     Dates: start: 20110412, end: 20160401
  4. DOLUTEGRAVIR [Suspect]
     Active Substance: DOLUTEGRAVIR
     Indication: HIV INFECTION
     Route: 048
     Dates: start: 20160802, end: 20160831

REACTIONS (2)
  - Exposure during pregnancy [Unknown]
  - Abortion [Recovered/Resolved]

NARRATIVE: CASE EVENT DATE: 20160912
